FAERS Safety Report 13254182 (Version 1)
Quarter: 2017Q1

REPORT INFORMATION
  Report Type: Spontaneous
  Country: US (occurrence: US)
  Receive Date: 20170221
  Receipt Date: 20170221
  Transmission Date: 20170428
  Serious: No
  Sender: FDA-Public Use
  Company Number: PHEH2017US005036

PATIENT
  Age: 46 Year
  Sex: Male

DRUGS (1)
  1. COSENTYX [Suspect]
     Active Substance: SECUKINUMAB
     Indication: ANKYLOSING SPONDYLITIS
     Dosage: 150 MG, QMO
     Route: 058
     Dates: start: 20161014

REACTIONS (5)
  - Cough [Unknown]
  - Dysuria [Unknown]
  - Aphonia [Unknown]
  - Micturition urgency [Unknown]
  - Pyrexia [Unknown]

NARRATIVE: CASE EVENT DATE: 20170210
